FAERS Safety Report 5914315-9 (Version None)
Quarter: 2008Q4

REPORT INFORMATION
  Report Type: 
  Country: None (occurrence: None)
  Receive Date: 20081009
  Receipt Date: 20081001
  Transmission Date: 20090506
  Serious: Yes (Death, Other)
  Sender: FDA-Public Use
  Company Number: JP-PFIZER INC-2008073652

PATIENT
  Age: 88 Year
  Sex: Female

DRUGS (3)
  1. CELECOX [Suspect]
     Indication: OSTEOARTHRITIS
     Route: 048
     Dates: start: 20080213, end: 20080417
  2. CONIEL [Concomitant]
     Indication: HYPERTENSION
     Dates: end: 20080417
  3. EPLERENONE [Concomitant]
     Indication: HYPERTENSION
     Dates: start: 20071205, end: 20080417

REACTIONS (1)
  - PNEUMONIA [None]
